FAERS Safety Report 9411907 (Version 1)
Quarter: 2013Q3

REPORT INFORMATION
  Report Type: Report from Study
  Country: BR (occurrence: BR)
  Receive Date: 20130722
  Receipt Date: 20130722
  Transmission Date: 20140515
  Serious: Yes (Other)
  Sender: FDA-Public Use
  Company Number: PHHY2013BR077392

PATIENT
  Sex: Female
  Weight: 66 kg

DRUGS (5)
  1. DIOVAN HCT [Suspect]
     Indication: BLOOD PRESSURE ABNORMAL
     Dosage: 1 DF (VALS 160 MG HCTZ 12.5 MG) DAILY
     Route: 048
  2. DIOVAN HCT [Suspect]
     Dosage: 2 DF (VALS 160 MG HCTZ 12.5 MG) DAILY
     Route: 048
  3. SIMVASTATIN [Concomitant]
     Indication: BLOOD CHOLESTEROL ABNORMAL
     Dosage: 20 MG, UNK
  4. OMEPRAZOLE [Concomitant]
     Indication: GASTRITIS
     Dosage: 20 MG, UNK
  5. FLOTAC                                  /CHL/ [Concomitant]
     Indication: INFLAMMATION
     Dosage: SOS (ONLY WHEN SHE FELT PAIN)

REACTIONS (3)
  - Intervertebral disc protrusion [Not Recovered/Not Resolved]
  - Blood pressure increased [Not Recovered/Not Resolved]
  - Headache [Not Recovered/Not Resolved]
